FAERS Safety Report 22317241 (Version 2)
Quarter: 2023Q2

REPORT INFORMATION
  Report Type: Report from Study
  Country: US (occurrence: US)
  Receive Date: 20230515
  Receipt Date: 20230515
  Transmission Date: 20230721
  Serious: Yes (Other)
  Sender: FDA-Public Use
  Company Number: US-ABBVIE-4761737

PATIENT
  Sex: Female

DRUGS (1)
  1. IMBRUVICA [Suspect]
     Active Substance: IBRUTINIB
     Indication: B-cell small lymphocytic lymphoma
     Dosage: TIME INTERVAL: 0.33333333 DAYS
     Route: 048
     Dates: start: 20230220

REACTIONS (8)
  - Skin cancer [Unknown]
  - Diarrhoea [Unknown]
  - Muscle spasms [Unknown]
  - Headache [Unknown]
  - Arthralgia [Unknown]
  - Transplant [Unknown]
  - Abnormal faeces [Unknown]
  - Photopsia [Unknown]
